FAERS Safety Report 6871619 (Version 1)
Quarter: 2020Q3

REPORT INFORMATION
  Report Type: Spontaneous
  Country: DE (occurrence: DE)
  Receive Date: 20090102
  Receipt Date: 20090102
  Transmission Date: 20201105
  Serious: Yes (Other)
  Sender: FDA-Public Use
  Company Number: DE-ROCHE-600054

PATIENT
  Age: 55 Year
  Sex: Female

DRUGS (3)
  1. ARIMIDEX [Concomitant]
     Active Substance: ANASTROZOLE
     Indication: BREAST CANCER
     Dosage: IN THE MORNING WITH EMPTY STOMACH
     Route: 048
  2. IBANDRONIC ACID. [Suspect]
     Active Substance: IBANDRONIC ACID
     Route: 048
     Dates: start: 20081104, end: 20081123
  3. IBANDRONIC ACID. [Concomitant]
     Active Substance: IBANDRONIC ACID
     Route: 042
     Dates: start: 200705, end: 20081103

REACTIONS (7)
  - Bone pain [Recovering/Resolving]
  - Swelling face [Recovering/Resolving]
  - Peripheral paralysis [Recovering/Resolving]
  - Urinary retention [Recovering/Resolving]
  - Visual impairment [Recovering/Resolving]
  - Chest pain [Recovering/Resolving]
  - Abdominal pain upper [Recovering/Resolving]

NARRATIVE: CASE EVENT DATE: 20081107
